FAERS Safety Report 15868325 (Version 1)
Quarter: 2019Q1

REPORT INFORMATION
  Report Type: Spontaneous
  Country: US (occurrence: US)
  Receive Date: 20190125
  Receipt Date: 20190125
  Transmission Date: 20190417
  Serious: Yes (Hospitalization)
  Sender: FDA-Public Use
  Company Number: US-OTSUKA-2018_023877

PATIENT
  Sex: Male

DRUGS (3)
  1. ABILIFY [Suspect]
     Active Substance: ARIPIPRAZOLE
     Dosage: 15 MG, UNK
     Route: 065
     Dates: end: 2014
  2. ARIPIPRAZOLE. [Concomitant]
     Active Substance: ARIPIPRAZOLE
     Indication: PRODUCT USED FOR UNKNOWN INDICATION
     Dosage: UNK
     Route: 065
  3. ABILIFY [Suspect]
     Active Substance: ARIPIPRAZOLE
     Indication: BIPOLAR DISORDER
     Dosage: 10 MG, UNK
     Route: 065
     Dates: start: 2007

REACTIONS (8)
  - Shoplifting [Unknown]
  - Mental disorder [Unknown]
  - Sexual dysfunction [Unknown]
  - Gambling disorder [Recovered/Resolved]
  - Impulse-control disorder [Unknown]
  - Obsessive-compulsive disorder [Unknown]
  - Compulsive shopping [Unknown]
  - Economic problem [Unknown]

NARRATIVE: CASE EVENT DATE: 2007
